FAERS Safety Report 7836677-8 (Version None)
Quarter: 2011Q4

REPORT INFORMATION
  Report Type: 
  Country: None (occurrence: None)
  Receive Date: 20111024
  Receipt Date: 20110224
  Transmission Date: 20120403
  Serious: No
  Sender: FDA-Public Use
  Company Number: US-ABBOTT-11P-163-0707687-00

PATIENT
  Age: 42 Year
  Sex: Female

DRUGS (2)
  1. LUPRON DEPOT [Suspect]
     Indication: UTERINE ENLARGEMENT
  2. LUPRON DEPOT [Suspect]
     Indication: UTERINE LEIOMYOMA

REACTIONS (5)
  - VOMITING [None]
  - MEDICAL DEVICE COMPLICATION [None]
  - PAIN [None]
  - WEIGHT DECREASED [None]
  - NAUSEA [None]
